FAERS Safety Report 18528899 (Version 7)
Quarter: 2021Q4

REPORT INFORMATION
  Report Type: Spontaneous
  Country: US (occurrence: US)
  Receive Date: 20201120
  Receipt Date: 20211012
  Transmission Date: 20220303
  Serious: Yes (Other)
  Sender: FDA-Public Use
  Company Number: US-PFIZER INC-2020457774

PATIENT
  Age: 64 Year
  Sex: Female

DRUGS (2)
  1. IBRANCE [Suspect]
     Active Substance: PALBOCICLIB
     Dosage: UNK
  2. LETROZOLE [Concomitant]
     Active Substance: LETROZOLE
     Dosage: UNK

REACTIONS (8)
  - Cancer pain [Recovering/Resolving]
  - Arthralgia [Unknown]
  - Skin abrasion [Recovering/Resolving]
  - Impaired healing [Recovering/Resolving]
  - Fatigue [Unknown]
  - Wound [Recovering/Resolving]
  - Arthritis [Unknown]
  - Increased upper airway secretion [Unknown]
